FAERS Safety Report 21971240 (Version 3)
Quarter: 2023Q2

REPORT INFORMATION
  Report Type: Spontaneous
  Country: US (occurrence: None)
  Receive Date: 20230209
  Receipt Date: 20230405
  Transmission Date: 20230721
  Serious: No
  Sender: FDA-Public Use
  Company Number: 2023A026704

PATIENT
  Sex: Female
  Weight: 117.9 kg

DRUGS (2)
  1. BYDUREON BCISE [Suspect]
     Active Substance: EXENATIDE
     Indication: Weight decreased
     Dosage: 2 MG, ONCE A WEEK
     Route: 058
  2. INSULIN NOS [Concomitant]
     Active Substance: INSULIN NOS

REACTIONS (7)
  - Weight increased [Unknown]
  - Injection site injury [Unknown]
  - Incorrect dose administered by device [Unknown]
  - Wrong technique in device usage process [Unknown]
  - Product use in unapproved indication [Unknown]
  - Drug dose omission by device [Unknown]
  - Device delivery system issue [Unknown]
